FAERS Safety Report 7875854-7 (Version None)
Quarter: 2011Q4

REPORT INFORMATION
  Report Type: 
  Country: None (occurrence: None)
  Receive Date: 20111031
  Receipt Date: 20111019
  Transmission Date: 20120403
  Serious: Yes (Hospitalization)
  Sender: FDA-Public Use
  Company Number: PHHY2011FR93395

PATIENT
  Sex: Female

DRUGS (11)
  1. LAMISIL [Suspect]
     Indication: INTERTRIGO
     Dosage: 1 DF, QD
     Route: 048
     Dates: start: 20110718, end: 20110817
  2. HALDOL [Concomitant]
  3. METFORMIN HCL [Concomitant]
  4. FUROSEMIDE [Concomitant]
  5. NOZINAN [Concomitant]
  6. XYZAL [Concomitant]
  7. LEVOTHYROXINE SODIUM [Concomitant]
  8. DIO [Concomitant]
  9. LAMALINE [Suspect]
     Indication: BACK PAIN
     Dates: start: 20110718, end: 20110817
  10. LOCOID [Concomitant]
  11. CERAT INALTERABLE [Concomitant]

REACTIONS (15)
  - LYMPHOEDEMA [None]
  - DERMATITIS EXFOLIATIVE [None]
  - ACUTE GENERALISED EXANTHEMATOUS PUSTULOSIS [None]
  - NEUTROPHILIA [None]
  - PRURIGO [None]
  - TOXIC SKIN ERUPTION [None]
  - RASH MACULO-PAPULAR [None]
  - RASH [None]
  - ECZEMA [None]
  - LICHENIFICATION [None]
  - RASH PUSTULAR [None]
  - OEDEMA PERIPHERAL [None]
  - BLISTER [None]
  - NORMOCHROMIC NORMOCYTIC ANAEMIA [None]
  - PSORIASIS [None]
